FAERS Safety Report 7804993-1 (Version None)
Quarter: 2011Q4

REPORT INFORMATION
  Report Type: 
  Country: None (occurrence: None)
  Receive Date: 20111010
  Receipt Date: 20111005
  Transmission Date: 20120403
  Serious: Yes (Death, Hospitalization)
  Sender: FDA-Public Use
  Company Number: US-GLAXOSMITHKLINE-A0766642A

PATIENT
  Age: 68 Year
  Sex: Male

DRUGS (5)
  1. ACIPHEX [Concomitant]
  2. LIPITOR [Concomitant]
  3. GLYBURIDE [Concomitant]
  4. ZYRTEC [Concomitant]
  5. AVANDIA [Suspect]
     Indication: DIABETES MELLITUS
     Dosage: 8MG PER DAY
     Route: 048
     Dates: start: 20020819, end: 20040309

REACTIONS (3)
  - CARDIAC FAILURE CONGESTIVE [None]
  - AORTIC VALVE REPLACEMENT [None]
  - RENAL FAILURE [None]
